FAERS Safety Report 5367325-7 (Version None)
Quarter: 2007Q2

REPORT INFORMATION
  Report Type: 
  Country: None (occurrence: None)
  Receive Date: 20070622
  Receipt Date: 20060505
  Transmission Date: 20071010
  Serious: No
  Sender: FDA-Public Use
  Company Number: US-ASTRAZENECA-2006UW08838

PATIENT
  Age: 75 Year
  Sex: Female
  Weight: 48.1 kg

DRUGS (6)
  1. PULMICORT RESPULES [Suspect]
     Indication: BRONCHIECTASIS
     Route: 055
  2. XOPENEX [Concomitant]
  3. NORVASC [Concomitant]
  4. ASOP [Concomitant]
     Indication: GLAUCOMA
  5. FOSAMAX [Concomitant]
  6. AMOXICILLIN [Concomitant]

REACTIONS (2)
  - MUSCLE SPASMS [None]
  - MUSCULAR WEAKNESS [None]
